FAERS Safety Report 4527270-3 (Version None)
Quarter: 2004Q4

REPORT INFORMATION
  Report Type: 
  Country: None (occurrence: None)
  Receive Date: 20041214
  Receipt Date: 20041214
  Transmission Date: 20050328
  Serious: Yes (Hospitalization)
  Sender: FDA-Public Use
  Company Number: None

PATIENT
  Sex: Male
  Weight: 60.3284 kg

DRUGS (5)
  1. LASIX [Suspect]
     Indication: HYPERTENSION
     Dosage: 40 MG PO BID
     Route: 048
  2. LOPRESSOR [Suspect]
     Dosage: 100 MG PO BID
     Route: 048
  3. ETODOLAC [Concomitant]
  4. THIAMINE [Concomitant]
  5. CATAPRES [Concomitant]

REACTIONS (1)
  - DIZZINESS [None]
